FAERS Safety Report 6566677-X (Version None)
Quarter: 2010Q1

REPORT INFORMATION
  Report Type: 
  Country: None (occurrence: None)
  Receive Date: 20100202
  Receipt Date: 20100125
  Transmission Date: 20100710
  Serious: Yes (Death)
  Sender: FDA-Public Use
  Company Number: CH-ROCHE-681358

PATIENT
  Age: 66 Year
  Sex: Male

DRUGS (2)
  1. AVASTIN [Suspect]
     Indication: PROSTATE CANCER
     Route: 065
     Dates: start: 20090101, end: 20090526
  2. TAXOTERE [Suspect]
     Indication: PROSTATE CANCER
     Route: 065
     Dates: start: 20090101, end: 20090526

REACTIONS (2)
  - DEATH [None]
  - METASTASES TO BONE [None]
